FAERS Safety Report 7032653-6 (Version None)
Quarter: 2010Q4

REPORT INFORMATION
  Report Type: 
  Country: None (occurrence: None)
  Receive Date: 20101007
  Receipt Date: 20100928
  Transmission Date: 20110411
  Serious: Yes (Other)
  Sender: FDA-Public Use
  Company Number: US-PURDUE-USA-2010-0048143

PATIENT
  Sex: Female

DRUGS (1)
  1. OXYCONTIN [Suspect]
     Indication: PRODUCT USED FOR UNKNOWN INDICATION
     Dosage: 80 MG, DAILY
     Dates: start: 19970101, end: 20100923

REACTIONS (9)
  - HAEMORRHAGE [None]
  - HYSTERECTOMY [None]
  - INSOMNIA [None]
  - KNEE OPERATION [None]
  - MUSCLE SPASMS [None]
  - NEOPLASM MALIGNANT [None]
  - NERVE INJURY [None]
  - PAIN [None]
  - PANIC REACTION [None]
